FAERS Safety Report 16217500 (Version 1)
Quarter: 2019Q2

REPORT INFORMATION
  Report Type: Spontaneous
  Country: GB (occurrence: GB)
  Receive Date: 20190419
  Receipt Date: 20190419
  Transmission Date: 20190711
  Serious: Yes (Other)
  Sender: FDA-Public Use
  Company Number: GB-JNJFOC-20190421817

PATIENT
  Age: 79 Year
  Sex: Male
  Weight: 58 kg

DRUGS (1)
  1. IBRUTINIB [Suspect]
     Active Substance: IBRUTINIB
     Indication: CHRONIC LYMPHOCYTIC LEUKAEMIA
     Route: 048
     Dates: start: 20170727, end: 20190304

REACTIONS (5)
  - Loss of consciousness [Unknown]
  - Dyskinesia [Unknown]
  - Atonic seizures [Recovered/Resolved]
  - Eye movement disorder [Unknown]
  - Vomiting [Unknown]
